FAERS Safety Report 21711400 (Version 1)
Quarter: 2022Q4

REPORT INFORMATION
  Report Type: Spontaneous
  Country: US (occurrence: US)
  Receive Date: 20221212
  Receipt Date: 20221212
  Transmission Date: 20230113
  Serious: No
  Sender: FDA-Public Use
  Company Number: US-VIIV HEALTHCARE LIMITED-US2022179989

PATIENT
  Age: 49 Year
  Sex: Male

DRUGS (2)
  1. RILPIVIRINE [Suspect]
     Active Substance: RILPIVIRINE
     Indication: HIV infection
     Dosage: 3 ML, STERIL TECHNIQUE UNDER LEFT BUTTOCK INJECTED WITH 3ML OF CABOTEGRAVIR 600MG
     Route: 065
     Dates: start: 20221101, end: 20221201
  2. CABOTEGRAVIR [Suspect]
     Active Substance: CABOTEGRAVIR
     Indication: HIV infection
     Dosage: 3 ML, STERIL TECHNIQUE UNDER LEFT BUTTOCK INJECTED WITH 3ML OF CABOTEGRAVIR 600MG
     Route: 065
     Dates: start: 20221101, end: 20221201

REACTIONS (2)
  - Herpes virus infection [Unknown]
  - Chest discomfort [Not Recovered/Not Resolved]

NARRATIVE: CASE EVENT DATE: 20221117
